FAERS Safety Report 5424841-7 (Version None)
Quarter: 2007Q3

REPORT INFORMATION
  Report Type: 
  Country: None (occurrence: None)
  Receive Date: 20070822
  Receipt Date: 20070806
  Transmission Date: 20080115
  Serious: Yes (Other)
  Sender: FDA-Public Use
  Company Number: DSA_61677_2007

PATIENT
  Age: 75 Year
  Sex: Female
  Weight: 79.3795 kg

DRUGS (6)
  1. MYSOLINE [Suspect]
     Indication: ESSENTIAL TREMOR
     Dosage: (250 MG QD ORAL), (250 MG QD ORAL), (350 MG QD ORAL)
     Route: 048
  2. PLAVIX [Concomitant]
  3. TOPAMAX [Concomitant]
  4. HYZAAR [Concomitant]
  5. CRESTOR [Concomitant]
  6. KLONOPIN [Concomitant]

REACTIONS (13)
  - ACTIVITIES OF DAILY LIVING IMPAIRED [None]
  - APHONIA [None]
  - ASTHENIA [None]
  - CRYING [None]
  - HAND DEFORMITY [None]
  - HYPOAESTHESIA [None]
  - HYPOTONIA [None]
  - INSOMNIA [None]
  - MUSCULOSKELETAL STIFFNESS [None]
  - OEDEMA PERIPHERAL [None]
  - OSTEOPOROSIS [None]
  - PAIN IN EXTREMITY [None]
  - TREMOR [None]
